FAERS Safety Report 10047539 (Version 1)
Quarter: 2014Q1

REPORT INFORMATION
  Report Type: Spontaneous
  Country: US (occurrence: None)
  Receive Date: 20140328
  Receipt Date: 20140328
  Transmission Date: 20141002
  Serious: Yes (Other)
  Sender: FDA-Public Use
  Company Number: None

PATIENT
  Age: 37 Year
  Sex: Male
  Weight: 83 kg

DRUGS (3)
  1. BACTRIM [Suspect]
     Dates: start: 20140319, end: 20140323
  2. LISINOPRIL [Concomitant]
  3. HCTZ [Concomitant]

REACTIONS (1)
  - Stevens-Johnson syndrome [None]
